FAERS Safety Report 9330118 (Version 1)
Quarter: 2013Q2

REPORT INFORMATION
  Report Type: Spontaneous
  Country: FR (occurrence: FR)
  Receive Date: 20130604
  Receipt Date: 20130604
  Transmission Date: 20140414
  Serious: Yes (Other)
  Sender: FDA-Public Use
  Company Number: FR-GILEAD-2013-0076249

PATIENT
  Sex: Male

DRUGS (1)
  1. VIREAD [Suspect]
     Indication: CHRONIC HEPATITIS B
     Dosage: UNK
     Route: 048
     Dates: start: 2010, end: 201303

REACTIONS (3)
  - Pruritus [Not Recovered/Not Resolved]
  - Dysgeusia [Not Recovered/Not Resolved]
  - Asthenia [Not Recovered/Not Resolved]
